FAERS Safety Report 13341841 (Version 7)
Quarter: 2018Q3

REPORT INFORMATION
  Report Type: Report from Study
  Country: CA (occurrence: CA)
  Receive Date: 20170316
  Receipt Date: 20180905
  Transmission Date: 20181010
  Serious: Yes (Other)
  Sender: FDA-Public Use
  Company Number: CA-ROCHE-1907461

PATIENT
  Age: 19 Year
  Sex: Female
  Weight: 59 kg

DRUGS (5)
  1. XOLAIR [Suspect]
     Active Substance: OMALIZUMAB
     Indication: CHRONIC SPONTANEOUS URTICARIA
     Route: 058
     Dates: start: 20100618
  2. XOLAIR [Suspect]
     Active Substance: OMALIZUMAB
     Route: 058
     Dates: start: 2018
  3. XOLAIR [Suspect]
     Active Substance: OMALIZUMAB
     Route: 058
     Dates: start: 20171128
  4. XOLAIR [Suspect]
     Active Substance: OMALIZUMAB
     Route: 058
  5. XOLAIR [Suspect]
     Active Substance: OMALIZUMAB
     Indication: ASTHMA
     Route: 058
     Dates: start: 20170303

REACTIONS (17)
  - Lip swelling [Unknown]
  - Initial insomnia [Unknown]
  - Disturbance in attention [Unknown]
  - Therapy partial responder [Unknown]
  - Urticaria [Not Recovered/Not Resolved]
  - Hypersensitivity [Unknown]
  - Anaphylactic reaction [Unknown]
  - Middle insomnia [Unknown]
  - Asthma [Recovering/Resolving]
  - Anaphylactic shock [Unknown]
  - Pneumonia [Unknown]
  - Blood immunoglobulin E increased [Unknown]
  - Emotional distress [Unknown]
  - Nervousness [Unknown]
  - Pruritus [Unknown]
  - Eye swelling [Unknown]
  - Fatigue [Unknown]

NARRATIVE: CASE EVENT DATE: 201607
